FAERS Safety Report 7931889-7 (Version None)
Quarter: 2011Q4

REPORT INFORMATION
  Report Type: 
  Country: None (occurrence: None)
  Receive Date: 20111121
  Receipt Date: 20111114
  Transmission Date: 20120403
  Serious: Yes (Other)
  Sender: FDA-Public Use
  Company Number: US-US-EMD SERONO, INC.-7095917

PATIENT
  Sex: Female

DRUGS (2)
  1. REBIF [Suspect]
     Indication: PRODUCT USED FOR UNKNOWN INDICATION
     Dates: start: 20111026
  2. REBIF [Suspect]
     Route: 058

REACTIONS (5)
  - INJECTION SITE HAEMATOMA [None]
  - ALLERGY TO ARTHROPOD STING [None]
  - DRUG HYPERSENSITIVITY [None]
  - DEPRESSION [None]
  - FATIGUE [None]
